FAERS Safety Report 18976055 (Version 1)
Quarter: 2021Q1

REPORT INFORMATION
  Report Type: Spontaneous
  Country: GB (occurrence: GB)
  Receive Date: 20210305
  Receipt Date: 20210305
  Transmission Date: 20210420
  Serious: Yes (Hospitalization, Disabling, Other)
  Sender: FDA-Public Use
  Company Number: GB-AUROBINDO-AUR-APL-2021-009192

PATIENT
  Age: 5 Year
  Sex: Male

DRUGS (2)
  1. TRANEXAMIC ACID. [Suspect]
     Active Substance: TRANEXAMIC ACID
     Indication: SURGERY
  2. TRANEXAMIC ACID. [Suspect]
     Active Substance: TRANEXAMIC ACID
     Indication: HAEMORRHAGE PROPHYLAXIS
     Dosage: 10 MILLIGRAM/KILOGRAM (ON INDUCTION AND THEN 10 MG/KG/HOUR)
     Route: 050

REACTIONS (5)
  - Blindness unilateral [Not Recovered/Not Resolved]
  - Haemorrhage intracranial [Unknown]
  - Drug ineffective [Unknown]
  - Hemiparesis [Recovered/Resolved]
  - Retinal artery occlusion [Not Recovered/Not Resolved]
